FAERS Safety Report 9541100 (Version 2)
Quarter: 2013Q4

REPORT INFORMATION
  Report Type: Spontaneous
  Country: US (occurrence: US)
  Receive Date: 20130923
  Receipt Date: 20131007
  Transmission Date: 20140711
  Serious: Yes (Other)
  Sender: FDA-Public Use
  Company Number: US-ROCHE-1278669

PATIENT
  Age: 20 Year
  Sex: Female

DRUGS (8)
  1. XOLAIR [Suspect]
     Indication: ASTHMA
     Route: 058
     Dates: start: 201112
  2. SINGULAIR [Concomitant]
     Indication: ASTHMA
     Route: 048
  3. ZYRTEC [Concomitant]
     Indication: RHINITIS ALLERGIC
     Route: 048
  4. MAGNESIUM OXIDE [Concomitant]
     Route: 048
  5. FOLIC ACID [Concomitant]
     Route: 048
  6. PROAIR (UNITED STATES) [Concomitant]
     Dosage: 2 PUFFS AS NEEDED
     Route: 055
  7. QVAR [Concomitant]
     Indication: ASTHMA
     Dosage: 2 PUFFS DAILY
     Route: 055
  8. ALBUTEROL [Concomitant]
     Indication: ASTHMA
     Dosage: 2 PUFFS EVERY 4 HOURS AS REQUIRED
     Route: 065

REACTIONS (1)
  - Hypersensitivity [Recovered/Resolved]
